FAERS Safety Report 7017717-5 (Version None)
Quarter: 2010Q3

REPORT INFORMATION
  Report Type: 
  Country: None (occurrence: None)
  Receive Date: 20100928
  Receipt Date: 20100917
  Transmission Date: 20110219
  Serious: Yes (Other)
  Sender: FDA-Public Use
  Company Number: FR-JNJFOC-20100904918

PATIENT
  Age: 26 Year
  Sex: Female

DRUGS (1)
  1. REMICADE [Suspect]
     Indication: HIDRADENITIS
     Dosage: 4 DOSES
     Route: 042

REACTIONS (7)
  - ANTINUCLEAR ANTIBODY POSITIVE [None]
  - ASTHENIA [None]
  - HYPERPYREXIA [None]
  - INFECTION [None]
  - MYALGIA [None]
  - NAUSEA [None]
  - VOMITING [None]
